FAERS Safety Report 9351821 (Version 1)
Quarter: 2013Q2

REPORT INFORMATION
  Report Type: Spontaneous
  Country: US (occurrence: US)
  Receive Date: 20130617
  Receipt Date: 20130617
  Transmission Date: 20140414
  Serious: No
  Sender: FDA-Public Use
  Company Number: US-AMGEN-USASP2013011380

PATIENT
  Age: 57 Year
  Sex: Female
  Weight: 61.22 kg

DRUGS (5)
  1. PROLIA [Suspect]
     Indication: OSTEOPOROSIS POSTMENOPAUSAL
     Dosage: 60 MG, Q6MO
     Route: 058
     Dates: start: 20121228
  2. PROLIA [Suspect]
  3. CENTRUM                            /07499601/ [Concomitant]
     Dosage: UNK
  4. VITAMIN D                          /00107901/ [Concomitant]
     Dosage: UNK
  5. ANTIDEPRESSANTS [Concomitant]
     Dosage: UNK

REACTIONS (11)
  - Mobility decreased [Unknown]
  - Activities of daily living impaired [Unknown]
  - Crepitations [Unknown]
  - Exercise tolerance decreased [Unknown]
  - Irritability [Unknown]
  - Calcinosis [Unknown]
  - Periarthritis [Unknown]
  - Emotional disorder [Unknown]
  - Injection site pain [Not Recovered/Not Resolved]
  - Musculoskeletal pain [Not Recovered/Not Resolved]
  - Pain in extremity [Not Recovered/Not Resolved]
